FAERS Safety Report 15074918 (Version 1)
Quarter: 2018Q2

REPORT INFORMATION
  Report Type: Spontaneous
  Country: None (occurrence: US)
  Receive Date: 20180627
  Receipt Date: 20180627
  Transmission Date: 20180711
  Serious: Yes (Other)
  Sender: FDA-Public Use
  Company Number: US-SAOL THERAPEUTICS-2017SAO01503

PATIENT
  Age: 62 Year
  Sex: Male
  Weight: 74.83 kg

DRUGS (5)
  1. BACLOFEN. [Suspect]
     Active Substance: BACLOFEN
     Indication: PAIN
     Dosage: 502.99 ?G, \DAY
     Route: 037
     Dates: end: 20170920
  2. BACLOFEN. [Suspect]
     Active Substance: BACLOFEN
     Indication: BACK PAIN
  3. BUPIVACAINE. [Suspect]
     Active Substance: BUPIVACAINE
     Dosage: 2.795 MG, \DAY
     Route: 037
     Dates: end: 20170920
  4. FENTANYL. [Suspect]
     Active Substance: FENTANYL
     Dosage: 2800 ?G, \DAY
     Route: 037
     Dates: end: 20170920
  5. MORPHINE [Suspect]
     Active Substance: MORPHINE
     Dosage: 4.193 MG, \DAY
     Route: 037
     Dates: end: 20170920

REACTIONS (5)
  - Drug withdrawal syndrome [Recovering/Resolving]
  - Off label use [Not Recovered/Not Resolved]
  - Back pain [Unknown]
  - Device failure [Recovered/Resolved]
  - Device infusion issue [Unknown]

NARRATIVE: CASE EVENT DATE: 20170821
